FAERS Safety Report 8791633 (Version 1)
Quarter: 2012Q4

REPORT INFORMATION
  Report Type: 
  Country: FR (occurrence: FR)
  Receive Date: 20120918
  Receipt Date: 20120918
  Transmission Date: 20130627
  Serious: Yes (Hospitalization)
  Sender: FDA-Public Use
  Company Number: FR-PFIZER INC-2012226323

PATIENT
  Age: 77 Year
  Sex: Female

DRUGS (4)
  1. SPIRONOLACTONE [Suspect]
     Dosage: UNK
     Route: 048
     Dates: end: 20111003
  2. PAROXETINE [Suspect]
     Dosage: UNK
     Route: 048
     Dates: end: 20111003
  3. VASTAREL [Suspect]
     Dosage: UNK
     Route: 048
     Dates: start: 20111003
  4. PREVISCAN [Concomitant]
     Dosage: UNK
     Dates: end: 20111003

REACTIONS (5)
  - Fall [Recovered/Resolved]
  - Upper limb fracture [None]
  - Haemarthrosis [None]
  - Hyponatraemia [None]
  - Vitamin D deficiency [None]
